FAERS Safety Report 21967697 (Version 1)
Quarter: 2023Q1

REPORT INFORMATION
  Report Type: Spontaneous
  Country: US (occurrence: US)
  Receive Date: 20230208
  Receipt Date: 20230208
  Transmission Date: 20230417
  Serious: No
  Sender: FDA-Public Use
  Company Number: US-BRISTOL-MYERS SQUIBB COMPANY-2023-014975

PATIENT
  Age: 72 Year
  Sex: Male

DRUGS (1)
  1. LENALIDOMIDE [Suspect]
     Active Substance: LENALIDOMIDE
     Indication: Plasma cell myeloma
     Dosage: 1 DF: 1 CAPSULE?FREQ: TAKE 1 CAPSULE BY MOUTH EVERY DAY ON DAYS 1-21. REPEAT EVERY 28 DAYS
     Route: 048

REACTIONS (1)
  - Coronavirus infection [Not Recovered/Not Resolved]
